FAERS Safety Report 6550446-0 (Version None)
Quarter: 2010Q1

REPORT INFORMATION
  Report Type: 
  Country: None (occurrence: None)
  Receive Date: 20100125
  Receipt Date: 20100119
  Transmission Date: 20100710
  Serious: Yes (Other)
  Sender: FDA-Public Use
  Company Number: B0628616A

PATIENT
  Age: 49 Year
  Sex: Female

DRUGS (2)
  1. NICOTINE LOZENGE [Suspect]
     Dosage: 4MG PER DAY
     Route: 002
     Dates: start: 20040101, end: 20090406
  2. NICOTINE LOZENGE [Suspect]
     Dosage: 4MG PER DAY
     Route: 002
     Dates: start: 20090401, end: 20090731

REACTIONS (7)
  - DIARRHOEA [None]
  - HEADACHE [None]
  - INTENTIONAL DRUG MISUSE [None]
  - MEDICATION ERROR [None]
  - NAUSEA [None]
  - TREMOR [None]
  - VERTIGO [None]
